FAERS Safety Report 6506417-3 (Version None)
Quarter: 2009Q4

REPORT INFORMATION
  Report Type: 
  Country: None (occurrence: None)
  Receive Date: 20091220
  Receipt Date: 20091216
  Transmission Date: 20100525
  Serious: Yes (Other)
  Sender: FDA-Public Use
  Company Number: US-BRISTOL-MYERS SQUIBB COMPANY-14896906

PATIENT
  Age: 77 Year
  Sex: Female
  Weight: 57 kg

DRUGS (1)
  1. ORENCIA [Suspect]

REACTIONS (1)
  - PELVIC FRACTURE [None]
